FAERS Safety Report 10230373 (Version 1)
Quarter: 2014Q2

REPORT INFORMATION
  Report Type: Report from Study
  Country: US (occurrence: US)
  Receive Date: 20140611
  Receipt Date: 20140611
  Transmission Date: 20141212
  Serious: Yes (Hospitalization)
  Sender: FDA-Public Use
  Company Number: US-SA-2014SA072294

PATIENT
  Age: 57 Year
  Sex: Male

DRUGS (3)
  1. LANTUS [Suspect]
     Indication: DIABETES MELLITUS
     Dosage: 150-160?UNITS
     Route: 065
     Dates: start: 2004
  2. METFORMIN [Concomitant]
  3. HUMALOG [Concomitant]

REACTIONS (6)
  - Cellulitis [Recovered/Resolved]
  - Pyrexia [Recovered/Resolved]
  - Peripheral swelling [Recovered/Resolved]
  - Staphylococcal infection [Recovered/Resolved]
  - Delirium [Recovered/Resolved]
  - Neuropathy peripheral [Recovered/Resolved]
